FAERS Safety Report 14374026 (Version 1)
Quarter: 2018Q1

REPORT INFORMATION
  Report Type: Spontaneous
  Country: CA (occurrence: CA)
  Receive Date: 20180111
  Receipt Date: 20180111
  Transmission Date: 20180509
  Serious: Yes (Other)
  Sender: FDA-Public Use
  Company Number: CA-009507513-1801CAN002096

PATIENT
  Age: 48 Year
  Sex: Female

DRUGS (13)
  1. BOCEPREVIR [Interacting]
     Active Substance: BOCEPREVIR
     Indication: HEPATITIS C VIRUS TEST POSITIVE
  2. EMTRICITABINE (+) TENOFOVIR ALAFENAMIDE FUMARATE [Interacting]
     Active Substance: EMTRICITABINE\TENOFOVIR ALAFENAMIDE FUMARATE
  3. PLACEBO [Interacting]
     Active Substance: UNSPECIFIED INGREDIENT
     Indication: HEPATITIS C VIRUS TEST POSITIVE
  4. ABACAVIR SULFATE (+) LAMIVUDINE [Interacting]
     Active Substance: ABACAVIR SULFATE\LAMIVUDINE
     Indication: HIV INFECTION
  5. ISENTRESS [Suspect]
     Active Substance: RALTEGRAVIR POTASSIUM
     Indication: HIV INFECTION
  6. RIBAVIRIN. [Interacting]
     Active Substance: RIBAVIRIN
     Dosage: 200 MG, QD
  7. ETRAVIRINE [Interacting]
     Active Substance: ETRAVIRINE
     Indication: HIV INFECTION
  8. CYCLOSPORINE. [Interacting]
     Active Substance: CYCLOSPORINE
     Indication: IMMUNOSUPPRESSION
  9. MYCOPHENOLATE MOFETIL. [Interacting]
     Active Substance: MYCOPHENOLATE MOFETIL
     Indication: IMMUNOSUPPRESSION
  10. RIBAVIRIN. [Interacting]
     Active Substance: RIBAVIRIN
     Indication: HEPATITIS C VIRUS TEST POSITIVE
     Dosage: 600 MG, QD
  11. RIBAVIRIN. [Interacting]
     Active Substance: RIBAVIRIN
     Dosage: 200 MG, UNK
  12. SIMEPREVIR [Interacting]
     Active Substance: SIMEPREVIR
     Indication: HIV INFECTION
     Dosage: 150 MG, QD
  13. SOFOSBUVIR [Interacting]
     Active Substance: SOFOSBUVIR
     Indication: HIV INFECTION
     Dosage: 400 MG, QD

REACTIONS (10)
  - Depressive symptom [Recovered/Resolved]
  - Drug ineffective [Recovered/Resolved]
  - Ascites [Recovered/Resolved]
  - Drug interaction [Recovered/Resolved]
  - Renal impairment [Recovered/Resolved]
  - Hepatitis C [Recovered/Resolved]
  - Anaemia [Recovered/Resolved]
  - Hyperbilirubinaemia [Recovered/Resolved]
  - Encephalopathy [Recovered/Resolved]
  - Hepatic cirrhosis [Recovered/Resolved]
